FAERS Safety Report 18766996 (Version 2)
Quarter: 2021Q2

REPORT INFORMATION
  Report Type: Spontaneous
  Country: US (occurrence: US)
  Receive Date: 20210121
  Receipt Date: 20210409
  Transmission Date: 20210717
  Serious: No
  Sender: FDA-Public Use
  Company Number: US-BIOGEN-2020BI00827092

PATIENT
  Age: 46 Year
  Sex: Female

DRUGS (7)
  1. TECFIDERA [Suspect]
     Active Substance: DIMETHYL FUMARATE
     Route: 048
     Dates: start: 20180202
  2. TECFIDERA [Suspect]
     Active Substance: DIMETHYL FUMARATE
     Route: 065
  3. TECFIDERA [Suspect]
     Active Substance: DIMETHYL FUMARATE
     Indication: MULTIPLE SCLEROSIS
     Route: 065
  4. TECFIDERA [Suspect]
     Active Substance: DIMETHYL FUMARATE
     Route: 065
     Dates: start: 2013
  5. TECFIDERA [Suspect]
     Active Substance: DIMETHYL FUMARATE
     Route: 048
     Dates: start: 20180202
  6. TECFIDERA [Suspect]
     Active Substance: DIMETHYL FUMARATE
     Route: 048
     Dates: start: 20170407, end: 20170626
  7. TECFIDERA [Suspect]
     Active Substance: DIMETHYL FUMARATE
     Route: 048
     Dates: start: 202104

REACTIONS (14)
  - Fatigue [Not Recovered/Not Resolved]
  - Headache [Unknown]
  - Cognitive disorder [Recovered/Resolved]
  - Coordination abnormal [Recovered/Resolved]
  - Abdominal pain upper [Not Recovered/Not Resolved]
  - Product dose omission in error [Unknown]
  - Fatigue [Unknown]
  - Abdominal discomfort [Recovered/Resolved]
  - Gastric disorder [Not Recovered/Not Resolved]
  - Hemianaesthesia [Unknown]
  - Head discomfort [Recovered/Resolved]
  - Photopsia [Unknown]
  - Flushing [Not Recovered/Not Resolved]
  - White blood cell count decreased [Unknown]

NARRATIVE: CASE EVENT DATE: 20210118
